FAERS Safety Report 21045374 (Version 3)
Quarter: 2022Q3

REPORT INFORMATION
  Report Type: Spontaneous
  Country: DK (occurrence: DK)
  Receive Date: 20220706
  Receipt Date: 20220902
  Transmission Date: 20221026
  Serious: Yes (Hospitalization)
  Sender: FDA-Public Use
  Company Number: DK-NOVOPROD-935155

PATIENT
  Age: 45 Year
  Sex: Female
  Weight: 95 kg

DRUGS (5)
  1. SAXENDA [Suspect]
     Active Substance: LIRAGLUTIDE
     Indication: Obesity
     Dosage: 3 MG, QD
     Route: 058
  2. BRINTELLIX [Concomitant]
     Active Substance: VORTIOXETINE HYDROBROMIDE
     Indication: Antidepressant therapy
     Dosage: UNK
  3. PANTOPRAZOLE SODIUM [Concomitant]
     Active Substance: PANTOPRAZOLE SODIUM
     Indication: Product used for unknown indication
     Dosage: UNK
  4. ZOPICLONE [Concomitant]
     Active Substance: ZOPICLONE
     Indication: Insomnia
     Dosage: 7.50 MG, QD
     Route: 048
  5. MAGNESIA [MAGNESIUM OXIDE] [Concomitant]
     Indication: Constipation
     Dosage: 2.00 DF PM

REACTIONS (1)
  - Depression [Unknown]
